FAERS Safety Report 17487289 (Version 1)
Quarter: 2020Q1

REPORT INFORMATION
  Report Type: Spontaneous
  Country: US (occurrence: US)
  Receive Date: 20200219
  Receipt Date: 20200219
  Transmission Date: 20200409
  Serious: Yes (Hospitalization)
  Sender: FDA-Public Use
  Company Number: None

PATIENT
  Age: 91 Year
  Sex: Male
  Weight: 62 kg

DRUGS (1)
  1. ATORVASTATIN (ATORVASTATIN CA 80MG TAB) [Suspect]
     Active Substance: ATORVASTATIN
     Indication: HYPERLIPIDAEMIA
     Dosage: ?          OTHER FREQUENCY:PM;?
     Route: 048
     Dates: start: 20151025, end: 20180421

REACTIONS (3)
  - Asthenia [None]
  - Therapy cessation [None]
  - Myalgia [None]

NARRATIVE: CASE EVENT DATE: 20180421
